FAERS Safety Report 10609953 (Version 5)
Quarter: 2015Q2

REPORT INFORMATION
  Report Type: Spontaneous
  Country: US (occurrence: US)
  Receive Date: 20141126
  Receipt Date: 20150625
  Transmission Date: 20150821
  Serious: Yes (Other)
  Sender: FDA-Public Use
  Company Number: US-PFIZER INC-2014323525

PATIENT
  Age: 66 Year
  Sex: Female

DRUGS (18)
  1. LYRICA [Suspect]
     Active Substance: PREGABALIN
     Indication: NEUROPATHY PERIPHERAL
     Dosage: 200 MG, 3X/DAY
     Route: 048
     Dates: start: 2007, end: 20140512
  2. PHENERGAN [Concomitant]
     Active Substance: PROMETHAZINE HYDROCHLORIDE
     Dosage: 25 MG, UNK
  3. ATIVAN [Concomitant]
     Active Substance: LORAZEPAM
     Indication: STRESS
     Dosage: 0.5 MG 1/2 TO 1 Q. 6 HOURS
  4. PHENAZOPYRIDINE. [Concomitant]
     Active Substance: PHENAZOPYRIDINE
     Indication: BLADDER SPASM
     Dosage: 100 MG, 3X/DAY
  5. ROCEPHIN [Concomitant]
     Active Substance: CEFTRIAXONE SODIUM
     Dosage: UNK
  6. ALBUTEROL HFA [Concomitant]
     Active Substance: ALBUTEROL SULFATE
     Dosage: 2 PUFFS Q 4-6
  7. NORCO [Concomitant]
     Active Substance: ACETAMINOPHEN\HYDROCODONE BITARTRATE
     Indication: PAIN
     Dosage: 10 MG, 1X/DAY (HYDROCODONE BITARTRATE 10MG , PARACETAMOL 325MG)
  8. OXYBUTYNIN [Concomitant]
     Active Substance: OXYBUTYNIN
     Dosage: 5 MG, 3X/DAY
  9. GABAPENTIN. [Concomitant]
     Active Substance: GABAPENTIN
     Dosage: 100 MG, 2X/DAY
     Dates: start: 20140512
  10. RELAFEN [Concomitant]
     Active Substance: NABUMETONE
     Dosage: 750 MG, 2X/DAY
     Route: 048
  11. OMEPRAZOLE. [Concomitant]
     Active Substance: OMEPRAZOLE
     Dosage: 40 MG, UNK
  12. LEVAQUIN [Concomitant]
     Active Substance: LEVOFLOXACIN
     Dosage: UNK
  13. LORTAB [Concomitant]
     Active Substance: ACETAMINOPHEN\HYDROCODONE BITARTRATE
     Indication: BACK DISORDER
     Dosage: 4-5 LORTAB A DAY
  14. ELAVIL [Concomitant]
     Active Substance: AMITRIPTYLINE HYDROCHLORIDE
     Dosage: 150 MG, DAILY (AT HS )
  15. AMITRIPTYLINE [Concomitant]
     Active Substance: AMITRIPTYLINE
     Dosage: UNK
  16. LYRICA [Suspect]
     Active Substance: PREGABALIN
     Indication: ANXIETY
     Dosage: 200 MG, 3X/DAY AS NEEDED
     Route: 048
     Dates: start: 20141215
  17. ROBITUSSIN AC [Concomitant]
     Indication: COUGH
     Dosage: 1-2 TSP Q 4-6 HOURS
  18. LUNESTA [Concomitant]
     Active Substance: ESZOPICLONE
     Dosage: 3 MG, DAILY (1 Q HS )

REACTIONS (18)
  - Bladder spasm [Unknown]
  - Product use issue [Unknown]
  - Neurogenic bladder [Unknown]
  - Cardiac failure congestive [Unknown]
  - Abdominal distension [Unknown]
  - Extrapyramidal disorder [Unknown]
  - Impaired gastric emptying [Unknown]
  - Pneumonia [Unknown]
  - Back disorder [Unknown]
  - Lumbar spinal stenosis [Unknown]
  - Urinary incontinence [Unknown]
  - Abdominal discomfort [Unknown]
  - Rash [Unknown]
  - Stress [Unknown]
  - Fibromyalgia [Unknown]
  - Oral candidiasis [Unknown]
  - Inflammation [Unknown]
  - Respiratory tract congestion [Unknown]

NARRATIVE: CASE EVENT DATE: 20141215
